FAERS Safety Report 14336041 (Version 2)
Quarter: 2018Q1

REPORT INFORMATION
  Report Type: Report from Study
  Country: BR (occurrence: BR)
  Receive Date: 20171229
  Receipt Date: 20180110
  Transmission Date: 20180509
  Serious: Yes (Other)
  Sender: FDA-Public Use
  Company Number: PHHY2017BR061000

PATIENT
  Sex: Female
  Weight: 47 kg

DRUGS (3)
  1. DIOVAN [Suspect]
     Active Substance: VALSARTAN
     Indication: HYPERTENSION
     Dosage: 1 DF, QD
     Route: 048
  2. RIVOTRIL [Concomitant]
     Active Substance: CLONAZEPAM
     Indication: AGGRESSION
     Dosage: 1 DF, QD (20 YEARS AGO)
     Route: 048
  3. TOFRANIL [Concomitant]
     Active Substance: IMIPRAMINE HYDROCHLORIDE
     Indication: AGGRESSION
     Dosage: 1 DF, QD
     Route: 048

REACTIONS (10)
  - Aerophagia [Recovered/Resolved]
  - Stress [Unknown]
  - Fatigue [Unknown]
  - Gait disturbance [Recovered/Resolved]
  - Drug ineffective [Recovered/Resolved]
  - Blood pressure inadequately controlled [Unknown]
  - Renal disorder [Unknown]
  - Malaise [Unknown]
  - Cataract [Unknown]
  - Blood pressure increased [Unknown]
